FAERS Safety Report 7255558-4 (Version None)
Quarter: 2011Q1

REPORT INFORMATION
  Report Type: 
  Country: None (occurrence: None)
  Receive Date: 20110129
  Receipt Date: 20100421
  Transmission Date: 20110831
  Serious: Yes (Hospitalization)
  Sender: FDA-Public Use
  Company Number: US-ABBOTT-10P-163-0636955-00

PATIENT
  Sex: Male
  Weight: 126.67 kg

DRUGS (9)
  1. NIASPAN [Concomitant]
     Indication: PRODUCT USED FOR UNKNOWN INDICATION
  2. SIMVASTATIN [Concomitant]
     Indication: PRODUCT USED FOR UNKNOWN INDICATION
  3. AMIODARONE [Concomitant]
     Indication: ARRHYTHMIA
  4. VOCUSATE [Concomitant]
     Indication: CONSTIPATION PROPHYLAXIS
  5. HUMIRA [Suspect]
     Indication: PSORIASIS
     Dates: start: 20090101
  6. METOPROLOL [Concomitant]
     Indication: HYPERTENSION
  7. HYDROCODONE GENERIC [Concomitant]
     Indication: PAIN
  8. SENNACONC [Concomitant]
     Indication: PRODUCT USED FOR UNKNOWN INDICATION
  9. RANITIDINE [Concomitant]
     Indication: PRODUCT USED FOR UNKNOWN INDICATION

REACTIONS (1)
  - CORONARY ARTERY OCCLUSION [None]
